FAERS Safety Report 24065654 (Version 2)
Quarter: 2024Q4

REPORT INFORMATION
  Report Type: Report from Study
  Country: MX (occurrence: MX)
  Receive Date: 20240709
  Receipt Date: 20241219
  Transmission Date: 20250115
  Serious: Yes (Disabling)
  Sender: ABBVIE
  Company Number: MX-ABBOTT-2024A-1383820

PATIENT
  Sex: Female
  Weight: 56 kg

DRUGS (3)
  1. TRILIPIX [Suspect]
     Active Substance: FENOFIBRIC ACID
     Indication: Blood cholesterol increased
     Dosage: 1 PILL DAILY IN THE AFTERNOON, WHICH STARTED 5 YEARS AGO, THEN PATIENT REPORTS THAT IT WAS 10 YEA...
     Route: 048
  2. FENOFIBRATE\SIMVASTATIN [Suspect]
     Active Substance: FENOFIBRATE\SIMVASTATIN
     Indication: Blood cholesterol
     Dosage: 1 TABLET DAILY IN THE AFTERNOON FOR AN INDEFINITE PERIOD
     Route: 048
     Dates: start: 2021
  3. LEVOTHYROXINE [Concomitant]
     Active Substance: LEVOTHYROXINE
     Indication: Hypothyroidism
     Dosage: 1 TABLET DAILY ON AN EMPTY STOMACH, ?LEVOTHYROXINE 75 MG
     Route: 048

REACTIONS (11)
  - Upper limb fracture [Unknown]
  - Drug ineffective [Unknown]
  - Vertigo [Unknown]
  - Hypoxia [Unknown]
  - Fall [Unknown]
  - Hernia pain [Unknown]
  - Myalgia [Unknown]
  - Dizziness [Unknown]
  - Blood disorder [Unknown]
  - Gastrointestinal disorder [Unknown]
  - Product quality issue [Unknown]
